FAERS Safety Report 20719569 (Version 1)
Quarter: 2022Q2

REPORT INFORMATION
  Report Type: Spontaneous
  Country: US (occurrence: None)
  Receive Date: 20220418
  Receipt Date: 20220418
  Transmission Date: 20220721
  Serious: Yes (Hospitalization)
  Sender: FDA-Public Use
  Company Number: None

PATIENT
  Age: 55 Year
  Sex: Female

DRUGS (17)
  1. XOLAIR [Suspect]
     Active Substance: OMALIZUMAB
     Indication: Asthma
     Dosage: FREQUENCY : MONTHLY;?
     Route: 058
  2. ALBUTEROL NEB 0.5% [Concomitant]
  3. AUGMENTIN XR TAB 12HR [Concomitant]
  4. BREO ELLIPTA INH 100-25 [Concomitant]
  5. DILTIAZEM CAP 120MG ER [Concomitant]
  6. ESCITALOPRAM [Concomitant]
     Active Substance: ESCITALOPRAM OXALATE
  7. EXCEDRIN TAB MIGRAINE [Concomitant]
  8. FLUTICASONE [Concomitant]
     Active Substance: FLUTICASONE
  9. LEVOTHYROXIN TAB 50MCG [Concomitant]
  10. METHOCARBAM TAB 750MG [Concomitant]
  11. MONTELUKAST SODIUM [Concomitant]
     Active Substance: MONTELUKAST SODIUM
  12. MUCINEX TAB 600MG ER [Concomitant]
  13. OCEAN NASAL SPR 0.65% [Concomitant]
  14. PREDNISONE [Concomitant]
     Active Substance: PREDNISONE
  15. PREDNISONE TAB 1MG [Concomitant]
  16. SINGULAIR [Concomitant]
     Active Substance: MONTELUKAST SODIUM
  17. TYLENOL TAB 500MG [Concomitant]

REACTIONS (1)
  - Product dose omission issue [None]

NARRATIVE: CASE EVENT DATE: 20220331
